FAERS Safety Report 11882496 (Version 1)
Quarter: 2015Q4

REPORT INFORMATION
  Report Type: Spontaneous
  Country: US (occurrence: None)
  Receive Date: 20151230
  Receipt Date: 20151230
  Transmission Date: 20160305
  Serious: Yes (Disabling)
  Sender: FDA-Public Use
  Company Number: None

PATIENT
  Age: 56 Year
  Sex: Male
  Weight: 100.7 kg

DRUGS (5)
  1. COREG [Concomitant]
     Active Substance: CARVEDILOL
  2. LOSARTIN [Concomitant]
     Active Substance: LOSARTAN
  3. LEVATHYROXINE [Concomitant]
  4. BABY ASPIRIN [Concomitant]
     Active Substance: ASPIRIN
  5. MAGNEVIST [Suspect]
     Active Substance: GADOPENTETATE DIMEGLUMINE

REACTIONS (3)
  - Balance disorder [None]
  - Amnesia [None]
  - Feeling abnormal [None]

NARRATIVE: CASE EVENT DATE: 20140529
